FAERS Safety Report 4513753-9 (Version None)
Quarter: 2004Q4

REPORT INFORMATION
  Report Type: 
  Country: None (occurrence: None)
  Receive Date: 20041130
  Receipt Date: 20041019
  Transmission Date: 20050328
  Serious: Yes (Hospitalization, Other)
  Sender: FDA-Public Use
  Company Number: DE-BRISTOL-MYERS SQUIBB COMPANY-12742706

PATIENT
  Sex: Male

DRUGS (5)
  1. DAIVONEX [Suspect]
     Indication: PSORIASIS
     Dosage: DURATION: ^YEARS^
     Route: 061
     Dates: end: 20040421
  2. DIOVAN [Concomitant]
  3. IMODIUM [Concomitant]
  4. METFORMIN HCL [Concomitant]
  5. VITAMIN B-12 [Concomitant]
     Route: 030

REACTIONS (2)
  - CALCULUS URETERIC [None]
  - CALCULUS URINARY [None]
